FAERS Safety Report 18761840 (Version 1)
Quarter: 2021Q1

REPORT INFORMATION
  Report Type: Spontaneous
  Country: US (occurrence: US)
  Receive Date: 20210116
  Receipt Date: 20210116
  Transmission Date: 20210419
  Serious: Yes (Death)
  Sender: FDA-Public Use
  Company Number: None

PATIENT
  Age: 7 Year
  Sex: Male

DRUGS (9)
  1. VIGABATRIN 500 MG [Suspect]
     Active Substance: VIGABATRIN
     Indication: EPILEPSY
     Route: 048
     Dates: start: 20200610, end: 20210107
  2. LEVETIRACETA [Concomitant]
     Active Substance: LEVETIRACETAM
  3. VITAMIN D [Concomitant]
     Active Substance: VITAMIN D NOS
  4. GLYCOPYRROL [Concomitant]
  5. CLONIDINE. [Concomitant]
     Active Substance: CLONIDINE
  6. PREVACID [Concomitant]
     Active Substance: LANSOPRAZOLE
  7. VITAMIN D3 [Concomitant]
     Active Substance: CHOLECALCIFEROL
  8. BANZEL [Concomitant]
     Active Substance: RUFINAMIDE
  9. CLOBAZAM. [Concomitant]
     Active Substance: CLOBAZAM

REACTIONS (1)
  - Death [None]

NARRATIVE: CASE EVENT DATE: 20210107
